FAERS Safety Report 10208195 (Version 1)
Quarter: 2014Q2

REPORT INFORMATION
  Report Type: Spontaneous
  Country: US (occurrence: US)
  Receive Date: 20140530
  Receipt Date: 20140530
  Transmission Date: 20141212
  Serious: No
  Sender: FDA-Public Use
  Company Number: US-PURDUE-USA-2013-0108552

PATIENT
  Sex: Male

DRUGS (4)
  1. MORPHINE SULFATE EXTENDED-RELEASE TABLETS (RHODES 74-769, 74-862) [Suspect]
     Indication: SICKLE CELL ANAEMIA
     Dosage: 30 MG, Q12H
     Route: 048
     Dates: start: 2011
  2. MORPHINE SULFATE EXTENDED-RELEASE TABLETS (RHODES 74-769, 74-862) [Suspect]
     Indication: ARTHRALGIA
     Dosage: 15 MG, Q12H
     Route: 048
     Dates: start: 2011, end: 2011
  3. MORPHINE SULFATE (SIMILAR TO NDA 19-516) [Concomitant]
     Indication: SICKLE CELL ANAEMIA
     Dosage: 30 MG, QID PRN
     Route: 048
  4. MORPHINE SULFATE (SIMILAR TO NDA 19-516) [Concomitant]
     Indication: ARTHRALGIA

REACTIONS (4)
  - Pain [Not Recovered/Not Resolved]
  - Somnolence [Not Recovered/Not Resolved]
  - Drug ineffective [Not Recovered/Not Resolved]
  - Product coating issue [Not Recovered/Not Resolved]
